FAERS Safety Report 7737034-5 (Version None)
Quarter: 2011Q3

REPORT INFORMATION
  Report Type: 
  Country: None (occurrence: None)
  Receive Date: 20110908
  Receipt Date: 20110826
  Transmission Date: 20111222
  Serious: No
  Sender: FDA-Public Use
  Company Number: US-ELI_LILLY_AND_COMPANY-US201010007036

PATIENT
  Age: 55 Year
  Sex: Female
  Weight: 81.633 kg

DRUGS (16)
  1. FORTEO [Suspect]
     Dosage: 20 UG, DAILY (1/D)
     Route: 058
  2. PROAIR HFA [Concomitant]
  3. MAGNESIUM [Concomitant]
  4. SLOW-MAG [Concomitant]
  5. VITAMIN K TAB [Concomitant]
  6. CELEBREX [Concomitant]
  7. FORTEO [Suspect]
     Indication: OSTEOPOROSIS
     Dosage: 20 UG, DAILY (1/D)
     Route: 058
     Dates: start: 20100902
  8. CALCIUM CARBONATE [Concomitant]
  9. FOLIC ACID [Concomitant]
  10. SYNTHROID [Concomitant]
  11. SINGULAIR [Concomitant]
  12. VITAMIN B [Concomitant]
  13. NEXIUM [Concomitant]
  14. VIACTIV                            /00751501/ [Concomitant]
  15. CENTRUM                            /00554501/ [Concomitant]
  16. VITAMIN D [Concomitant]

REACTIONS (3)
  - PAIN IN EXTREMITY [None]
  - MUSCLE SPASMS [None]
  - OSTEOARTHRITIS [None]
